FAERS Safety Report 4777768-8 (Version None)
Quarter: 2005Q3

REPORT INFORMATION
  Report Type: 
  Country: None (occurrence: None)
  Receive Date: 20050922
  Receipt Date: 20050912
  Transmission Date: 20060218
  Serious: Yes (Other)
  Sender: FDA-Public Use
  Company Number: 2005126807

PATIENT
  Age: 25 Year
  Sex: Male
  Weight: 72.5755 kg

DRUGS (4)
  1. UNISOM [Suspect]
     Indication: SUICIDE ATTEMPT
     Dosage: 6 TO 8 SLEEPGELS ONCE, ORAL
     Route: 048
     Dates: start: 20050912, end: 20050912
  2. VICODIN [Concomitant]
  3. CARISOPRODOL [Concomitant]
  4. PROVELLA-14 (ESTROGENS CONJUGATED, MEDROXYPROGESTERONE ACETATE) [Concomitant]

REACTIONS (3)
  - INTENTIONAL MISUSE [None]
  - SUICIDE ATTEMPT [None]
  - VOMITING [None]
